FAERS Safety Report 18061247 (Version 1)
Quarter: 2020Q3

REPORT INFORMATION
  Report Type: Spontaneous
  Country: CA (occurrence: CA)
  Receive Date: 20200723
  Receipt Date: 20200723
  Transmission Date: 20201103
  Serious: Yes (Hospitalization)
  Sender: FDA-Public Use
  Company Number: CA-TEVA-2020-CA-1803357

PATIENT
  Age: 76 Year
  Sex: Female

DRUGS (12)
  1. METFORMIN [Suspect]
     Active Substance: METFORMIN HYDROCHLORIDE
     Indication: TYPE 2 DIABETES MELLITUS
     Route: 048
  2. ROSUVASTATIN. [Concomitant]
     Active Substance: ROSUVASTATIN
  3. ZOPICLONE [Concomitant]
     Active Substance: ZOPICLONE
  4. LANTUS [Concomitant]
     Active Substance: INSULIN GLARGINE
  5. VITAMIN D [Concomitant]
     Active Substance: VITAMIN D NOS
  6. MIRTAZAPINE. [Concomitant]
     Active Substance: MIRTAZAPINE
  7. AMLODIPINE [Concomitant]
     Active Substance: AMLODIPINE BESYLATE
  8. CIPROFLOXACIN. [Concomitant]
     Active Substance: CIPROFLOXACIN
  9. PERINDOPRIL [Suspect]
     Active Substance: PERINDOPRIL
     Indication: HYPERTENSION
     Route: 048
  10. DIMENHYDRINATE. [Concomitant]
     Active Substance: DIMENHYDRINATE
  11. FERROUS GLUCONATE [Concomitant]
     Active Substance: FERROUS GLUCONATE
  12. LOPERAMIDE [Concomitant]
     Active Substance: LOPERAMIDE

REACTIONS (1)
  - Acute kidney injury [Recovered/Resolved]
